FAERS Safety Report 7759224-8 (Version None)
Quarter: 2011Q3

REPORT INFORMATION
  Report Type: 
  Country: None (occurrence: None)
  Receive Date: 20110915
  Receipt Date: 20110830
  Transmission Date: 20111222
  Serious: Yes (Death, Other)
  Sender: FDA-Public Use
  Company Number: FK201101852

PATIENT
  Age: 72 Year
  Sex: Female

DRUGS (5)
  1. ALEMTUZUMAB (ALEMTUZUMAB) (ALEMTUZUMAB) [Suspect]
     Indication: PERIPHERAL T-CELL LYMPHOMA UNSPECIFIED
  2. ETOPOSIDE [Suspect]
     Indication: PERIPHERAL T-CELL LYMPHOMA UNSPECIFIED
  3. CYTARABINE [Suspect]
     Indication: PERIPHERAL T-CELL LYMPHOMA UNSPECIFIED
  4. CARMUSTINE [Suspect]
     Indication: PERIPHERAL T-CELL LYMPHOMA UNSPECIFIED
  5. MELPHALAN HYDROCHLORIDE [Suspect]
     Indication: PERIPHERAL T-CELL LYMPHOMA UNSPECIFIED

REACTIONS (17)
  - BK VIRUS INFECTION [None]
  - ADENOVIRUS INFECTION [None]
  - MUCOSAL INFLAMMATION [None]
  - MULTI-ORGAN FAILURE [None]
  - PANCYTOPENIA [None]
  - CYTOMEGALOVIRUS INFECTION [None]
  - CYTOMEGALOVIRUS VIRAEMIA [None]
  - GASTROENTERITIS ADENOVIRUS [None]
  - PARAINFLUENZAE VIRUS INFECTION [None]
  - FEBRILE NEUTROPENIA [None]
  - FATIGUE [None]
  - CLOSTRIDIUM DIFFICILE COLITIS [None]
  - CYSTITIS HAEMORRHAGIC [None]
  - GASTROENTERITIS [None]
  - ASTHENIA [None]
  - VIRAEMIA [None]
  - DEHYDRATION [None]
